FAERS Safety Report 14957250 (Version 4)
Quarter: 2024Q2

REPORT INFORMATION
  Report Type: Spontaneous
  Country: JP (occurrence: JP)
  Receive Date: 20180531
  Receipt Date: 20240415
  Transmission Date: 20240716
  Serious: Yes (Hospitalization, Other)
  Sender: FDA-Public Use
  Company Number: JP-MLMSERVICE-20180523-1187211-1

PATIENT
  Age: 62 Year
  Sex: Female

DRUGS (3)
  1. DOCETAXEL [Suspect]
     Active Substance: DOCETAXEL\DOCETAXEL ANHYDROUS
     Indication: Oesophageal squamous cell carcinoma
     Dosage: UNK
  2. CISPLATIN [Suspect]
     Active Substance: CISPLATIN
     Indication: Oesophageal squamous cell carcinoma
     Dosage: UNK
  3. FLUOROURACIL [Suspect]
     Active Substance: FLUOROURACIL
     Indication: Oesophageal squamous cell carcinoma
     Dosage: UNK

REACTIONS (4)
  - Tumour necrosis [Recovered/Resolved]
  - White blood cell count increased [Unknown]
  - Pyrexia [Unknown]
  - Back pain [Unknown]
